FAERS Safety Report 5383837-4 (Version None)
Quarter: 2007Q3

REPORT INFORMATION
  Report Type: 
  Country: None (occurrence: None)
  Receive Date: 20070706
  Receipt Date: 20070626
  Transmission Date: 20080115
  Serious: Yes (Hospitalization, Other)
  Sender: FDA-Public Use
  Company Number: 38479

PATIENT
  Age: 79 Year
  Sex: Male

DRUGS (1)
  1. ALLOPURINOL [Suspect]
     Indication: HYPERURICAEMIA
     Dosage: 300 MG/DAY

REACTIONS (14)
  - ANOREXIA [None]
  - ARTERIOSCLEROSIS [None]
  - ASTHENIA [None]
  - BLOOD PH DECREASED [None]
  - BLOOD PRESSURE DIASTOLIC INCREASED [None]
  - GRANULOMA [None]
  - HAEMATOCRIT DECREASED [None]
  - HAEMODIALYSIS [None]
  - HYPERKALAEMIA [None]
  - METABOLIC ACIDOSIS [None]
  - NEPHRITIS INTERSTITIAL [None]
  - POLYDIPSIA [None]
  - POLYURIA [None]
  - RED BLOOD CELL SEDIMENTATION RATE INCREASED [None]
